FAERS Safety Report 7704406-4 (Version None)
Quarter: 2011Q3

REPORT INFORMATION
  Report Type: 
  Country: None (occurrence: None)
  Receive Date: 20110823
  Receipt Date: 20110815
  Transmission Date: 20111222
  Serious: Yes (Other)
  Sender: FDA-Public Use
  Company Number: US-JNJFOC-20110807596

PATIENT
  Sex: Male

DRUGS (5)
  1. LIALDA [Concomitant]
     Dates: start: 20080101
  2. REMICADE [Suspect]
     Route: 042
     Dates: start: 20110617
  3. OTHER THERAPEUTIC MEDICATION [Concomitant]
  4. REMICADE [Suspect]
     Indication: COLITIS ULCERATIVE
     Route: 042
     Dates: start: 20080701
  5. MULTI-VITAMINS [Concomitant]
     Indication: VITAMIN SUPPLEMENTATION

REACTIONS (1)
  - ARRHYTHMIA [None]
